FAERS Safety Report 8351883-4 (Version None)
Quarter: 2012Q2

REPORT INFORMATION
  Report Type: 
  Country: None (occurrence: None)
  Receive Date: 20120510
  Receipt Date: 20120510
  Transmission Date: 20120825
  Serious: Yes (Hospitalization)
  Sender: FDA-Public Use
  Company Number: None

PATIENT
  Sex: Male
  Weight: 65.9 kg

DRUGS (2)
  1. ETOPOSIDE [Suspect]
     Dosage: 180 MG
  2. CISPLATIN [Suspect]
     Dosage: 145 MG

REACTIONS (1)
  - NEUTROPENIA [None]
